FAERS Safety Report 11294944 (Version 1)
Quarter: 2015Q3

REPORT INFORMATION
  Report Type: Spontaneous
  Country: US (occurrence: None)
  Receive Date: 20150722
  Receipt Date: 20150722
  Transmission Date: 20151125
  Serious: Yes (Hospitalization)
  Sender: FDA-Public Use
  Company Number: None

PATIENT
  Age: 62 Year
  Sex: Female

DRUGS (13)
  1. WARFARIN [Concomitant]
     Active Substance: WARFARIN
  2. SAVELLA [Concomitant]
     Active Substance: MILNACIPRAN HYDROCHLORIDE
  3. ORENCIA [Suspect]
     Active Substance: ABATACEPT
     Indication: RHEUMATOID ARTHRITIS
     Route: 058
     Dates: start: 20140110
  4. PANTOPRAZOLE [Concomitant]
     Active Substance: PANTOPRAZOLE SODIUM
  5. NIASPAN [Concomitant]
     Active Substance: NIACIN
  6. PREDNISONE. [Concomitant]
     Active Substance: PREDNISONE
  7. LIDODERM [Concomitant]
     Active Substance: LIDOCAINE
  8. GABAPENTIN. [Concomitant]
     Active Substance: GABAPENTIN
  9. LASIX [Concomitant]
     Active Substance: FUROSEMIDE
  10. CARDIZEM [Concomitant]
     Active Substance: DILTIAZEM HYDROCHLORIDE
  11. LYRICA [Concomitant]
     Active Substance: PREGABALIN
  12. BENICAR [Concomitant]
     Active Substance: OLMESARTAN MEDOXOMIL
  13. TRIAM/HCTZ [Concomitant]

REACTIONS (1)
  - Arthritis infective [None]

NARRATIVE: CASE EVENT DATE: 20150720
